FAERS Safety Report 9717535 (Version 3)
Quarter: 2015Q3

REPORT INFORMATION
  Report Type: Spontaneous
  Country: US (occurrence: US)
  Receive Date: 20131127
  Receipt Date: 20150804
  Transmission Date: 20151125
  Serious: No
  Sender: FDA-Public Use
  Company Number: US-GILEAD-2009-0020552

PATIENT
  Age: 73 Year
  Sex: Female
  Weight: 60.33 kg

DRUGS (15)
  1. TOPROL XL [Concomitant]
     Active Substance: METOPROLOL SUCCINATE
  2. DIOVAN HCT [Concomitant]
     Active Substance: HYDROCHLOROTHIAZIDE\VALSARTAN
  3. COUMADIN [Concomitant]
     Active Substance: WARFARIN SODIUM
  4. BONIVA [Concomitant]
     Active Substance: IBANDRONATE SODIUM
  5. TUMS [Concomitant]
     Active Substance: CALCIUM CARBONATE
  6. ALLEGRA [Concomitant]
     Active Substance: FEXOFENADINE HYDROCHLORIDE
  7. VITAMIN C [Concomitant]
     Active Substance: ASCORBIC ACID
  8. LETAIRIS [Suspect]
     Active Substance: AMBRISENTAN
     Indication: PULMONARY ARTERIAL HYPERTENSION
     Route: 048
     Dates: start: 20090206, end: 20090211
  9. METOPROLOL SER [Concomitant]
  10. LANOXIN [Concomitant]
     Active Substance: DIGOXIN
  11. NASONEX [Concomitant]
     Active Substance: MOMETASONE FUROATE
  12. LASIX [Concomitant]
     Active Substance: FUROSEMIDE
  13. K-DUR [Concomitant]
     Active Substance: POTASSIUM CHLORIDE
  14. XOPENEX HFA [Concomitant]
     Active Substance: LEVALBUTEROL TARTRATE
  15. OSCAL + D [Concomitant]

REACTIONS (5)
  - Peripheral swelling [Recovered/Resolved]
  - Hypotension [Recovered/Resolved]
  - Flushing [Recovered/Resolved]
  - Pruritus [Recovered/Resolved]
  - Burning sensation [Recovered/Resolved]

NARRATIVE: CASE EVENT DATE: 20090206
